FAERS Safety Report 14627283 (Version 1)
Quarter: 2018Q1

REPORT INFORMATION
  Report Type: Spontaneous
  Country: US (occurrence: US)
  Receive Date: 20180312
  Receipt Date: 20180312
  Transmission Date: 20180509
  Serious: Yes (Hospitalization)
  Sender: FDA-Public Use
  Company Number: US-TEVA-2018-US-867173

PATIENT
  Age: 35 Year
  Sex: Female
  Weight: 101.11 kg

DRUGS (19)
  1. BISACODYL. [Concomitant]
     Active Substance: BISACODYL
     Route: 065
  2. ZANTAC [Concomitant]
     Active Substance: RANITIDINE HYDROCHLORIDE
     Route: 065
  3. BACLOFEN. [Suspect]
     Active Substance: BACLOFEN
     Indication: MUSCLE SPASTICITY
     Route: 039
  4. ASPIRIN-ACETAMINOPHEN-CAFFEINE [Concomitant]
     Dosage: 250-250-65 MG
     Route: 065
  5. LIORESAL [Suspect]
     Active Substance: BACLOFEN
     Dosage: 60 MILLIGRAM DAILY;
     Route: 048
  6. CLARITIN [Concomitant]
     Active Substance: LORATADINE
     Route: 065
  7. ATIVAN [Concomitant]
     Active Substance: LORAZEPAM
     Route: 065
  8. NEURONTIN [Suspect]
     Active Substance: GABAPENTIN
     Dosage: 2700 MILLIGRAM DAILY;
     Route: 048
  9. RESTORIL [Suspect]
     Active Substance: TEMAZEPAM
     Route: 065
  10. VITAMIN D2 [Concomitant]
     Active Substance: ERGOCALCIFEROL
     Dosage: 50,000 DOSAGE UNITS
     Route: 065
  11. SENNA-S [Concomitant]
     Active Substance: DOCUSATE SODIUM\SENNOSIDES
     Dosage: 8.6-50 MG
     Route: 065
  12. CYMBALTA [Suspect]
     Active Substance: DULOXETINE HYDROCHLORIDE
     Dosage: 90 MILLIGRAM DAILY;
     Route: 048
  13. NEURONTIN [Concomitant]
     Active Substance: GABAPENTIN
     Route: 065
  14. ROXICODONE [Concomitant]
     Active Substance: OXYCODONE HYDROCHLORIDE
     Route: 065
  15. ROXICODONE [Suspect]
     Active Substance: OXYCODONE HYDROCHLORIDE
     Route: 048
  16. RESTORIL [Suspect]
     Active Substance: TEMAZEPAM
  17. CARBOXYMETHYLCELLULOSE SODIUM. [Concomitant]
     Active Substance: CARBOXYMETHYLCELLULOSE SODIUM
     Indication: SUPPLEMENTATION THERAPY
     Route: 065
  18. BENADRYL [Concomitant]
     Active Substance: DIPHENHYDRAMINE HYDROCHLORIDE
     Route: 065
  19. ZYRTEC [Concomitant]
     Active Substance: CETIRIZINE HYDROCHLORIDE
     Route: 065

REACTIONS (9)
  - Device dislocation [Unknown]
  - Altered state of consciousness [Unknown]
  - Therapy non-responder [Unknown]
  - Discomfort [Unknown]
  - Device damage [Unknown]
  - Unresponsive to stimuli [Unknown]
  - Weight decreased [Unknown]
  - Medical device site discomfort [Unknown]
  - Decreased appetite [Unknown]

NARRATIVE: CASE EVENT DATE: 2017
